FAERS Safety Report 4333025-5 (Version None)
Quarter: 2004Q2

REPORT INFORMATION
  Report Type: 
  Country: None (occurrence: None)
  Receive Date: 20040406
  Receipt Date: 20040107
  Transmission Date: 20050107
  Serious: Yes (Other)
  Sender: FDA-Public Use
  Company Number: PHEH2004US00636

PATIENT
  Age: 47 Year
  Sex: Female
  Weight: 73 kg

DRUGS (10)
  1. ZOMETA [Suspect]
     Indication: METASTASES TO BONE
     Dosage: 4 MG PER MONTH
     Route: 042
     Dates: start: 20011213, end: 20030214
  2. LETROZOLE [Concomitant]
     Indication: BREAST CANCER
     Dosage: 2.5 MG, QD
     Route: 048
     Dates: start: 20011213, end: 20030214
  3. RETINOIDS FOR TREATMENT OF PSORIASIS [Concomitant]
     Indication: PSORIASIS
  4. AREDIA [Suspect]
     Indication: METASTASES TO BONE
     Dosage: 90 MG PER MONTH
     Route: 042
     Dates: start: 20020524, end: 20020524
  5. ACCUPRIL [Concomitant]
     Indication: HYPERTENSION
  6. MAXZIDE [Concomitant]
     Indication: HYPERTENSION
  7. ZOLOFT [Concomitant]
     Indication: DEPRESSION
  8. VIOXX [Concomitant]
     Indication: BONE PAIN
  9. ATIVAN [Concomitant]
     Indication: ANXIETY
  10. AMARYL [Concomitant]
     Indication: DIABETES MELLITUS

REACTIONS (7)
  - ABSCESS JAW [None]
  - ASEPTIC NECROSIS BONE [None]
  - DENTAL CARIES [None]
  - FISTULA [None]
  - INFECTION [None]
  - JAW OSTEITIS [None]
  - OSTEOMYELITIS [None]
